FAERS Safety Report 5515153-1 (Version None)
Quarter: 2007Q4

REPORT INFORMATION
  Report Type: 
  Country: None (occurrence: None)
  Receive Date: 20071113
  Receipt Date: 20070122
  Transmission Date: 20080405
  Serious: No
  Sender: FDA-Public Use
  Company Number: A0636537A

PATIENT
  Sex: Female

DRUGS (4)
  1. COREG [Suspect]
     Indication: HYPERTENSION
     Dosage: 6.125MG TWICE PER DAY
     Route: 048
  2. BENICAR HCT [Suspect]
  3. LANOXIN [Concomitant]
  4. ASA BABY [Concomitant]

REACTIONS (2)
  - HEART RATE INCREASED [None]
  - TREMOR [None]
